FAERS Safety Report 5337111-2 (Version None)
Quarter: 2007Q2

REPORT INFORMATION
  Report Type: 
  Country: None (occurrence: None)
  Receive Date: 20070529
  Receipt Date: 20070521
  Transmission Date: 20071010
  Serious: Yes (Other)
  Sender: FDA-Public Use
  Company Number: US-ELI_LILLY_AND_COMPANY-US200702003511

PATIENT
  Age: 79 Year
  Sex: Male
  Weight: 70.294 kg

DRUGS (5)
  1. SOMATROPIN [Suspect]
     Indication: CUSHING'S SYNDROME
     Dosage: 0.2 MG, UNK
     Dates: start: 20040226
  2. L-THYROXIN [Concomitant]
     Indication: HYPOTHYROIDISM
     Dates: start: 20040226
  3. GLUCOCORTICOIDS [Concomitant]
     Indication: ADRENAL INSUFFICIENCY
     Dates: start: 20040226
  4. ANDROGENS [Concomitant]
     Indication: ADRENAL INSUFFICIENCY
     Dates: start: 20040226
  5. VASOTEC [Concomitant]
     Indication: HYPERTENSION
     Dates: start: 20040226

REACTIONS (2)
  - DYSPLASIA [None]
  - VOCAL CORD NEOPLASM [None]
